FAERS Safety Report 7454557-7 (Version None)
Quarter: 2011Q2

REPORT INFORMATION
  Report Type: 
  Country: None (occurrence: None)
  Receive Date: 20110503
  Receipt Date: 20110419
  Transmission Date: 20111010
  Serious: Yes (Hospitalization, Other)
  Sender: FDA-Public Use
  Company Number: PHHY2011BR34694

PATIENT
  Sex: Female

DRUGS (3)
  1. DIOVAN AMLO FIX [Suspect]
     Indication: HYPERTENSION
     Dosage: 160 MG VALS AND 5 MG AMLO, 1 TABLET DAILY
     Route: 048
     Dates: start: 20101201
  2. PROPRANOLOL [Concomitant]
     Indication: MIGRAINE
  3. PROPRANOLOL [Concomitant]
     Indication: TACHYCARDIA
     Dosage: 40 MG (1 TABLET IN THE MORNING AND 1 TABLET AT NIGHT)
     Route: 048
     Dates: start: 20050101

REACTIONS (5)
  - PAIN IN EXTREMITY [None]
  - DYSSTASIA [None]
  - SCOLIOSIS RADIATION [None]
  - INTERVERTEBRAL DISC PROTRUSION [None]
  - BONE PAIN [None]
